FAERS Safety Report 10483276 (Version 2)
Quarter: 2014Q4

REPORT INFORMATION
  Report Type: Spontaneous
  Country: GB (occurrence: GB)
  Receive Date: 20140930
  Receipt Date: 20141017
  Transmission Date: 20150528
  Serious: Yes (Other)
  Sender: FDA-Public Use
  Company Number: GB-AUROBINDO-AUR-APL-2014-10167

PATIENT
  Age: 21 Year
  Sex: Female

DRUGS (5)
  1. CLOZARIL [Interacting]
     Active Substance: CLOZAPINE
     Dosage: 50 MG, UNK
     Route: 048
  2. MINOCYCLINE [Interacting]
     Active Substance: MINOCYCLINE\MINOCYCLINE HYDROCHLORIDE
     Indication: PRODUCT USED FOR UNKNOWN INDICATION
     Dosage: UNK
     Route: 065
  3. CLOZARIL [Interacting]
     Active Substance: CLOZAPINE
     Indication: SCHIZOPHRENIA
     Dosage: UNK
     Route: 048
     Dates: start: 20140616
  4. CITALOPRAM [Suspect]
     Active Substance: CITALOPRAM HYDROBROMIDE
     Indication: PRODUCT USED FOR UNKNOWN INDICATION
     Dosage: 20 MG, UNK
     Route: 048
  5. CITALOPRAM [Interacting]
     Active Substance: CITALOPRAM HYDROBROMIDE
     Dosage: UNK
     Route: 048

REACTIONS (7)
  - Circulatory collapse [Recovering/Resolving]
  - Drug dose omission [Unknown]
  - Anxiety [Recovering/Resolving]
  - Panic attack [Recovering/Resolving]
  - Electrocardiogram abnormal [None]
  - Tachycardia [Unknown]
  - Drug interaction [Unknown]

NARRATIVE: CASE EVENT DATE: 20140804
